FAERS Safety Report 5872269-8 (Version None)
Quarter: 2008Q3

REPORT INFORMATION
  Report Type: 
  Country: None (occurrence: None)
  Receive Date: 20080905
  Receipt Date: 20080825
  Transmission Date: 20090109
  Serious: Yes (Hospitalization, Other)
  Sender: FDA-Public Use
  Company Number: US-MERCK-0807USA00764

PATIENT
  Sex: Female

DRUGS (7)
  1. FOSAMAX [Suspect]
     Indication: OSTEOPOROSIS
     Route: 048
     Dates: start: 19990101, end: 20070101
  2. FOSAMAX PLUS D [Suspect]
     Indication: OSTEOPOROSIS
     Route: 048
     Dates: start: 19990101, end: 20070101
  3. NAPROSYN [Concomitant]
     Indication: NECK INJURY
     Route: 065
  4. SYNTHROID [Concomitant]
     Indication: BENIGN NEOPLASM OF THYROID GLAND
     Route: 065
     Dates: start: 19780201
  5. [THERAPY UNSPECIFIED] [Concomitant]
     Indication: DIABETES MELLITUS
     Route: 065
     Dates: start: 19980101
  6. HORMONES (UNSPECIFIED) [Concomitant]
     Route: 065
     Dates: start: 19860101, end: 20080101
  7. CORTICOSTEROIDS (UNSPECIFIED) [Concomitant]
     Indication: ARTHROPATHY
     Route: 065
     Dates: start: 19850101, end: 20080701

REACTIONS (11)
  - CATARACT [None]
  - EYE DISORDER [None]
  - HAND FRACTURE [None]
  - HYPERTENSION [None]
  - NON-CARDIAC CHEST PAIN [None]
  - OSTEONECROSIS [None]
  - PERIODONTAL INFECTION [None]
  - PNEUMONIA [None]
  - POST PROCEDURAL COMPLICATION [None]
  - RESORPTION BONE INCREASED [None]
  - TOOTH DISORDER [None]
